FAERS Safety Report 17142324 (Version 3)
Quarter: 2020Q3

REPORT INFORMATION
  Report Type: Report from Study
  Country: US (occurrence: US)
  Receive Date: 20191211
  Receipt Date: 20200915
  Transmission Date: 20201102
  Serious: Yes (Other)
  Sender: FDA-Public Use
  Company Number: US-INCYTE CORPORATION-2019IN010996

PATIENT

DRUGS (3)
  1. JAKAFI [Suspect]
     Active Substance: RUXOLITINIB
     Dosage: 10 MILLIGRAM, BID
     Route: 048
  2. JAKAFI [Suspect]
     Active Substance: RUXOLITINIB
     Indication: MYELOPROLIFERATIVE NEOPLASM
     Dosage: 10 MILLIGRAM, BID
     Route: 065
     Dates: start: 20191007
  3. JAKAFI [Suspect]
     Active Substance: RUXOLITINIB
     Indication: MYELODYSPLASTIC SYNDROME
     Dosage: 10 MILLIGRAM, BID
     Route: 048

REACTIONS (15)
  - Abdominal pain [Unknown]
  - Neuralgia [Unknown]
  - Weight decreased [Unknown]
  - Pain [Recovered/Resolved]
  - Seasonal allergy [Unknown]
  - Sinusitis [Unknown]
  - Influenza [Unknown]
  - Splenomegaly [Recovering/Resolving]
  - Productive cough [Unknown]
  - Gastrointestinal hypomotility [Unknown]
  - Off label use [Unknown]
  - Anaemia [Recovering/Resolving]
  - White blood cell count abnormal [Unknown]
  - Platelet count decreased [Unknown]
  - Asthenia [Unknown]

NARRATIVE: CASE EVENT DATE: 2019
